FAERS Safety Report 9633617 (Version 1)
Quarter: 2013Q4

REPORT INFORMATION
  Report Type: Spontaneous
  Country: FR (occurrence: FR)
  Receive Date: 20131021
  Receipt Date: 20131021
  Transmission Date: 20140711
  Serious: Yes (Hospitalization)
  Sender: FDA-Public Use
  Company Number: FR-JNJFOC-20131008150

PATIENT
  Age: 31 Year
  Sex: Male

DRUGS (3)
  1. XEPLION [Suspect]
     Indication: PRODUCT USED FOR UNKNOWN INDICATION
     Route: 030
     Dates: start: 20130417, end: 20130417
  2. XEPLION [Suspect]
     Indication: PRODUCT USED FOR UNKNOWN INDICATION
     Dosage: 75/4 WEEKS
     Route: 030
     Dates: start: 20130410, end: 20130410
  3. SERESTA [Concomitant]
     Route: 065

REACTIONS (1)
  - Pulmonary embolism [Recovering/Resolving]
